FAERS Safety Report 5662801-1 (Version None)
Quarter: 2008Q1

REPORT INFORMATION
  Report Type: 
  Country: None (occurrence: None)
  Receive Date: 20080311
  Receipt Date: 20080311
  Transmission Date: 20080703
  Serious: Yes (Hospitalization)
  Sender: FDA-Public Use
  Company Number: None

PATIENT
  Age: 39 Year
  Sex: Female

DRUGS (1)
  1. CITALOPRAM HYDROBROMIDE [Suspect]
     Dosage: ORAL
     Route: 048
     Dates: start: 20080207, end: 20080307

REACTIONS (6)
  - CONDITION AGGRAVATED [None]
  - DYSPHEMIA [None]
  - FEELING COLD [None]
  - MUSCLE DISORDER [None]
  - MUSCLE RIGIDITY [None]
  - TREMOR [None]
